FAERS Safety Report 15852309 (Version 1)
Quarter: 2018Q4

REPORT INFORMATION
  Report Type: Spontaneous
  Country: US (occurrence: US)
  Receive Date: 20181227
  Receipt Date: 20181227
  Transmission Date: 20190205
  Serious: Yes (Disabling)
  Sender: FDA-Public Use
  Company Number: None

PATIENT
  Age: 64 Year
  Sex: Male
  Weight: 78.75 kg

DRUGS (5)
  1. L-GLUTAMINE [Concomitant]
  2. RISPERDAL [Suspect]
     Active Substance: RISPERIDONE
     Indication: SCHIZOPHRENIA
     Dosage: ?          QUANTITY:2 DF DOSAGE FORM;?
     Route: 030
     Dates: start: 20070718, end: 20181227
  3. L TRYPTOPHANE [Concomitant]
  4. MULTIVITAMIN [Concomitant]
     Active Substance: VITAMINS
  5. AMINO ACID COMPLEX [Concomitant]

REACTIONS (1)
  - Hypertension [None]

NARRATIVE: CASE EVENT DATE: 20181227
